FAERS Safety Report 23091407 (Version 2)
Quarter: 2023Q4

REPORT INFORMATION
  Report Type: Spontaneous
  Country: US (occurrence: US)
  Receive Date: 20231020
  Receipt Date: 20231023
  Transmission Date: 20240109
  Serious: Yes (Life-Threatening, Hospitalization, Other)
  Sender: FDA-Public Use
  Company Number: US-MLMSERVICE-20231005-4588743-1

PATIENT
  Age: 61 Year
  Sex: Male
  Weight: 70 kg

DRUGS (1)
  1. LIDOCAINE HYDROCHLORIDE [Suspect]
     Active Substance: DEXTROSE MONOHYDRATE\EPINEPHRINE\EPINEPHRINE BITARTRATE\LIDOCAINE\LIDOCAINE HYDROCHLORIDE\LIDOCAINE
     Indication: Analgesic therapy
     Dosage: 20CC OF 2% LIDOCAINE(100MG/5CC)
     Route: 058

REACTIONS (9)
  - Overdose [Recovered/Resolved]
  - Local anaesthetic systemic toxicity [Recovered/Resolved]
  - Blood prolactin increased [Recovered/Resolved]
  - Urinary incontinence [Recovered/Resolved]
  - Mental status changes [Recovered/Resolved]
  - Cardiovascular insufficiency [Recovered/Resolved]
  - Nystagmus [Recovered/Resolved]
  - Consciousness fluctuating [Recovered/Resolved]
  - Miosis [Recovered/Resolved]
